FAERS Safety Report 9882010 (Version 1)
Quarter: 2014Q1

REPORT INFORMATION
  Report Type: Spontaneous
  Country: DE (occurrence: DE)
  Receive Date: 20140207
  Receipt Date: 20140207
  Transmission Date: 20141002
  Serious: Yes (Hospitalization, Other)
  Sender: FDA-Public Use
  Company Number: PHHY2014DE012434

PATIENT
  Age: 22 Year
  Sex: Female

DRUGS (5)
  1. CICLOSPORIN [Suspect]
     Indication: IMMUNOSUPPRESSION
  2. TACROLIMUS [Suspect]
     Indication: IMMUNOSUPPRESSION
  3. PREDNISOLONE [Suspect]
     Indication: IMMUNOSUPPRESSION
  4. ANTIBIOTICS [Suspect]
     Indication: PYREXIA
  5. PROTON PUMP INHIBITORS [Suspect]
     Indication: GASTROOESOPHAGEAL REFLUX DISEASE

REACTIONS (13)
  - Toxicity to various agents [Recovered/Resolved]
  - Diarrhoea [Recovered/Resolved]
  - Vomiting [Recovered/Resolved]
  - Dehydration [Recovered/Resolved]
  - Sepsis [Recovered/Resolved]
  - Renal failure [Recovered/Resolved]
  - Liver function test abnormal [Recovered/Resolved]
  - Creatinine renal clearance decreased [Recovered/Resolved]
  - Pyrexia [Recovered/Resolved]
  - Gastrooesophageal reflux disease [Recovered/Resolved]
  - Anogenital warts [Recovered/Resolved]
  - Transplant rejection [Recovering/Resolving]
  - Exposure during pregnancy [Unknown]
